FAERS Safety Report 4992839-9 (Version None)
Quarter: 2006Q1

REPORT INFORMATION
  Report Type: 
  Country: None (occurrence: None)
  Receive Date: 20060315
  Receipt Date: 20060104
  Transmission Date: 20060701
  Serious: No
  Sender: FDA-Public Use
  Company Number: 2006RL000008

PATIENT
  Age: 68 Year
  Sex: Female
  Weight: 95.2554 kg

DRUGS (1)
  1. OMACOR [Suspect]
     Indication: BLOOD CHOLESTEROL
     Dosage: 1 GM;QD;PO
     Route: 048
     Dates: start: 20051230, end: 20051230

REACTIONS (3)
  - ASTHENIA [None]
  - SENSATION OF FOREIGN BODY [None]
  - THROAT IRRITATION [None]
